FAERS Safety Report 25089224 (Version 2)
Quarter: 2025Q4

REPORT INFORMATION
  Report Type: Report from Study
  Country: US (occurrence: None)
  Receive Date: 20250318
  Receipt Date: 20251218
  Transmission Date: 20260119
  Serious: Yes (Other)
  Sender: UCB
  Company Number: US-UCBSA-2025015247

PATIENT
  Age: 18 Year
  Weight: 45 kg

DRUGS (1)
  1. FENFLURAMINE HYDROCHLORIDE [Suspect]
     Active Substance: FENFLURAMINE HYDROCHLORIDE
     Indication: Seizure
     Dosage: UNK

REACTIONS (2)
  - Ejection fraction abnormal [Not Recovered/Not Resolved]
  - Pulmonary valve incompetence [Recovering/Resolving]
